FAERS Safety Report 5338941-3 (Version None)
Quarter: 2007Q2

REPORT INFORMATION
  Report Type: 
  Country: None (occurrence: None)
  Receive Date: 20070404
  Receipt Date: 20060705
  Transmission Date: 20071010
  Serious: Yes (Other)
  Sender: FDA-Public Use
  Company Number: HQWYE732911JUL06

PATIENT
  Age: 72 Year
  Sex: Female
  Weight: 95.34 kg

DRUGS (8)
  1. ALAVERT [Suspect]
     Indication: EYE PRURITUS
     Dosage: 1 TABLET, 1 TIME, ORAL
     Route: 048
     Dates: start: 20060601, end: 20060601
  2. ALAVERT [Suspect]
     Indication: LACRIMATION INCREASED
     Dosage: 1 TABLET, 1 TIME, ORAL
     Route: 048
     Dates: start: 20060601, end: 20060601
  3. ALAVERT [Suspect]
     Indication: RHINORRHOEA
     Dosage: 1 TABLET, 1 TIME, ORAL
     Route: 048
     Dates: start: 20060601, end: 20060601
  4. ALAVERT [Suspect]
     Indication: SINUS HEADACHE
     Dosage: 1 TABLET, 1 TIME, ORAL
     Route: 048
     Dates: start: 20060601, end: 20060601
  5. VICODIN [Concomitant]
  6. HYZAAR [Concomitant]
  7. GLUCOPHAGE [Concomitant]
  8. POTASSIUM CHLORIDE [Concomitant]

REACTIONS (1)
  - PALPITATIONS [None]
